FAERS Safety Report 15534947 (Version 1)
Quarter: 2018Q4

REPORT INFORMATION
  Report Type: Spontaneous
  Country: US (occurrence: US)
  Receive Date: 20181022
  Receipt Date: 20181022
  Transmission Date: 20190205
  Serious: Yes (Life-Threatening)
  Sender: FDA-Public Use
  Company Number: US-TAKEDA-2018TUS030262

PATIENT
  Sex: Male

DRUGS (1)
  1. PREVACID [Suspect]
     Active Substance: LANSOPRAZOLE
     Indication: GASTROOESOPHAGEAL REFLUX DISEASE
     Dosage: UNK
     Route: 065
     Dates: start: 2007, end: 20181014

REACTIONS (5)
  - Incorrect product administration duration [Recovered/Resolved]
  - Dyskinesia [Unknown]
  - Iron deficiency [Unknown]
  - Dyspepsia [Not Recovered/Not Resolved]
  - Magnesium deficiency [Unknown]

NARRATIVE: CASE EVENT DATE: 2007
